FAERS Safety Report 24263883 (Version 1)
Quarter: 2024Q3

REPORT INFORMATION
  Report Type: Spontaneous
  Country: US (occurrence: None)
  Receive Date: 20240828
  Receipt Date: 20240828
  Transmission Date: 20241017
  Serious: Yes (Life-Threatening, Other)
  Sender: Public
  Company Number: None

PATIENT
  Sex: Female

DRUGS (1)
  1. ZOLPIDEM TARTRATE [Suspect]
     Active Substance: ZOLPIDEM TARTRATE
     Indication: Sleep disorder
     Dosage: OTHER QUANTITY : ONE;?OTHER FREQUENCY : AT NIGHT;?
     Route: 048

REACTIONS (4)
  - Dizziness [None]
  - Balance disorder [None]
  - Dysstasia [None]
  - Dyspnoea [None]
